FAERS Safety Report 14315482 (Version 2)
Quarter: 2018Q2

REPORT INFORMATION
  Report Type: Spontaneous
  Country: US (occurrence: US)
  Receive Date: 20171221
  Receipt Date: 20180510
  Transmission Date: 20180711
  Serious: No
  Sender: FDA-Public Use
  Company Number: US-BAYER-2017-241186

PATIENT
  Sex: Female

DRUGS (2)
  1. BEYAZ [Suspect]
     Active Substance: DROSPIRENONE\ETHINYL ESTRADIOL\LEVOMEFOLATE CALCIUM
     Indication: MENSTRUAL CYCLE MANAGEMENT
     Route: 048
  2. DROSPIRENONE+ETHINYLESTRADIOL+L-5-METHYLTETRAHYDROFOLIC ACID-CA SA [Suspect]
     Active Substance: DROSPIRENONE\ETHINYL ESTRADIOL\LEVOMEFOLATE CALCIUM
     Indication: ENDOMETRIOSIS
     Route: 048

REACTIONS (3)
  - Product use in unapproved indication [None]
  - Drug ineffective for unapproved indication [None]
  - Drug effective for unapproved indication [None]
